FAERS Safety Report 19634844 (Version 2)
Quarter: 2021Q3

REPORT INFORMATION
  Report Type: Spontaneous
  Country: NL (occurrence: NL)
  Receive Date: 20210730
  Receipt Date: 20210804
  Transmission Date: 20211014
  Serious: Yes (Disabling, Other)
  Sender: FDA-Public Use
  Company Number: NL-AUROBINDO-AUR-APL-2021-032475

PATIENT
  Age: 43 Year
  Sex: Female

DRUGS (5)
  1. PARACETAMOL [Suspect]
     Active Substance: ACETAMINOPHEN
     Indication: HEADACHE
     Dosage: UNK
     Route: 065
  2. NICOTINE. [Suspect]
     Active Substance: NICOTINE
     Indication: PRODUCT USED FOR UNKNOWN INDICATION
     Dosage: UNK
     Route: 065
  3. DEPO?PROVERA [Concomitant]
     Active Substance: MEDROXYPROGESTERONE ACETATE
     Indication: RELAPSING-REMITTING MULTIPLE SCLEROSIS
     Dosage: UNK
     Route: 065
  4. PARACETAMOL [Concomitant]
     Active Substance: ACETAMINOPHEN
     Indication: HEADACHE
     Dosage: UNK
     Route: 065
  5. TERIFLUNOMIDE. [Suspect]
     Active Substance: TERIFLUNOMIDE
     Indication: RELAPSING-REMITTING MULTIPLE SCLEROSIS
     Dosage: 14 MILLIGRAM, ONCE A DAY
     Route: 048
     Dates: start: 20210305

REACTIONS (22)
  - Pain [Unknown]
  - Contusion [Recovered/Resolved]
  - Dizziness [Not Recovered/Not Resolved]
  - Increased tendency to bruise [Unknown]
  - Vomiting [Unknown]
  - Nausea [Unknown]
  - Fatigue [Not Recovered/Not Resolved]
  - Stress [Not Recovered/Not Resolved]
  - Headache [Recovered/Resolved]
  - Nervousness [Not Recovered/Not Resolved]
  - Feeling cold [Not Recovered/Not Resolved]
  - Spinal disorder [Not Recovered/Not Resolved]
  - Myalgia [Recovered/Resolved]
  - Impaired work ability [Unknown]
  - Loss of control of legs [Recovered/Resolved]
  - Seizure [Not Recovered/Not Resolved]
  - Feeling abnormal [Not Recovered/Not Resolved]
  - Skin irritation [Unknown]
  - Rash [Not Recovered/Not Resolved]
  - Multiple sclerosis relapse [Unknown]
  - Skin discolouration [Not Recovered/Not Resolved]
  - Movement disorder [Recovering/Resolving]

NARRATIVE: CASE EVENT DATE: 2021
